FAERS Safety Report 7096529-0 (Version None)
Quarter: 2010Q4

REPORT INFORMATION
  Report Type: 
  Country: None (occurrence: None)
  Receive Date: 20101111
  Receipt Date: 20101108
  Transmission Date: 20110411
  Serious: Yes (Hospitalization)
  Sender: FDA-Public Use
  Company Number: A0889974A

PATIENT
  Age: 62 Year
  Sex: Male

DRUGS (6)
  1. AVANDIA [Suspect]
     Route: 048
     Dates: start: 20020101, end: 20080101
  2. MULTIPLE MEDICATIONS [Concomitant]
  3. HUMALOG [Concomitant]
  4. LIPITOR [Concomitant]
  5. LANTUS [Concomitant]
  6. CLONIDINE [Concomitant]

REACTIONS (6)
  - CARDIAC DISORDER [None]
  - CARDIAC FAILURE CONGESTIVE [None]
  - CORONARY ARTERY BYPASS [None]
  - DIALYSIS [None]
  - RENAL DISORDER [None]
  - RENAL TRANSPLANT [None]
